FAERS Safety Report 16749775 (Version 1)
Quarter: 2019Q4

REPORT INFORMATION
  Report Type: Spontaneous
  Country: US (occurrence: US)
  Receive Date: 20190826
  Receipt Date: 20190826
  Transmission Date: 20200122
  Serious: Yes (Other)
  Sender: FDA-Public Use
  Company Number: None

PATIENT
  Sex: Male

DRUGS (1)
  1. BLT CREAM, BENZOCAINE 20% LIDOCAINE 6% TETRACAINE 4% TOPICAL CREAM, TOPICAL ANESTHETIC [Suspect]
     Active Substance: BENZOCAINE\LIDOCAINE HYDROCHLORIDE\TETRACAINE
     Indication: APPLICATION SITE ANAESTHESIA
     Dosage: ?          OTHER FREQUENCY:AS NEEDED;?
     Route: 061
     Dates: start: 20190515, end: 20190515

REACTIONS (3)
  - Application site rash [None]
  - Reaction to excipient [None]
  - Hypersensitivity [None]

NARRATIVE: CASE EVENT DATE: 20190516
